FAERS Safety Report 17112306 (Version 7)
Quarter: 2020Q3

REPORT INFORMATION
  Report Type: Spontaneous
  Country: IN (occurrence: IN)
  Receive Date: 20191204
  Receipt Date: 20200901
  Transmission Date: 20201102
  Serious: Yes (Other)
  Sender: FDA-Public Use
  Company Number: IN-PFIZER INC-2019522964

PATIENT
  Age: 51 Year
  Sex: Male
  Weight: 64 kg

DRUGS (8)
  1. ULTRACET [Concomitant]
     Active Substance: ACETAMINOPHEN\TRAMADOL HYDROCHLORIDE
     Dosage: UNK, 2X/DAY (1?0?1 FOR 7 DAYS),
  2. ASCORIL [Concomitant]
     Dosage: 10 ML, FOR 7 DAYS
  3. CRIZALK [Suspect]
     Active Substance: CRIZOTINIB
     Indication: LUNG ADENOCARCINOMA
     Dosage: 250 MG, 2X/DAY
     Route: 048
     Dates: start: 20190405
  4. LOPAMIDE [Concomitant]
     Active Substance: LOPERAMIDE
     Dosage: 2 MG, UNK
  5. PYRIGESIC [Concomitant]
     Dosage: 1 G, AS NEEDED (1GM SOS, MAX OF 4 TIMES PER DAY)
  6. ZOLEDRONIC ACID. [Concomitant]
     Active Substance: ZOLEDRONIC ACID
     Dosage: UNK
  7. MUCAINE [ALUMINIUM HYDROXIDE;MAGNESIUM CARBONATE;OXETACAINE] [Concomitant]
     Dosage: 10 ML, 3X/DAY
  8. REGLAN [Concomitant]
     Active Substance: METOCLOPRAMIDE HYDROCHLORIDE
     Dosage: 10 MG, 3X/DAY

REACTIONS (6)
  - Neoplasm progression [Unknown]
  - Atelectasis [Unknown]
  - Bronchiectasis [Unknown]
  - Bronchial wall thickening [Unknown]
  - Pulmonary calcification [Unknown]
  - Inguinal hernia [Unknown]

NARRATIVE: CASE EVENT DATE: 20191118
